FAERS Safety Report 6930412-3 (Version None)
Quarter: 2010Q3

REPORT INFORMATION
  Report Type: 
  Country: None (occurrence: None)
  Receive Date: 20100813
  Receipt Date: 20100803
  Transmission Date: 20110219
  Serious: Yes (Hospitalization)
  Sender: FDA-Public Use
  Company Number: WAES 1008USA00507

PATIENT
  Age: 4 Year
  Sex: Female
  Weight: 14.9687 kg

DRUGS (8)
  1. ISENTRESS [Suspect]
     Indication: HIV INFECTION
     Dosage: 100 MG BID PO
     Route: 048
     Dates: start: 20100714
  2. ABACAVIR SULFATE [Concomitant]
  3. DIDANOSINE [Concomitant]
  4. EVAFIRENZ [Concomitant]
  5. FOLIC ACID [Concomitant]
  6. LAMIVUDINE [Suspect]
  7. SULFAMETHOXAZOLE (+) TRIMETHOPRI [Concomitant]
  8. VITAMINS (UNSPECIFIED) [Concomitant]

REACTIONS (6)
  - DRUG ERUPTION [None]
  - HEPATOMEGALY [None]
  - PRURITUS [None]
  - RASH ERYTHEMATOUS [None]
  - RASH MACULO-PAPULAR [None]
  - VIRAL RASH [None]
